FAERS Safety Report 21927611 (Version 1)
Quarter: 2023Q1

REPORT INFORMATION
  Report Type: Spontaneous
  Country: EG (occurrence: EG)
  Receive Date: 20230130
  Receipt Date: 20230130
  Transmission Date: 20230418
  Serious: Yes (Death, Other)
  Sender: FDA-Public Use
  Company Number: EG-PFIZER INC-PV202300018609

PATIENT
  Age: 49 Year
  Sex: Male

DRUGS (1)
  1. SUTENT [Suspect]
     Active Substance: SUNITINIB MALATE
     Indication: Primitive neuroectodermal tumour
     Dosage: 37.5 MG (3 TABLETS OF 12.5 MG), DAILY
     Route: 048
     Dates: start: 20221030

REACTIONS (1)
  - Death [Fatal]
